FAERS Safety Report 8129686-5 (Version None)
Quarter: 2012Q1

REPORT INFORMATION
  Report Type: 
  Country: None (occurrence: None)
  Receive Date: 20120210
  Receipt Date: 20120202
  Transmission Date: 20120608
  Serious: Yes (Other)
  Sender: FDA-Public Use
  Company Number: US-ELI_LILLY_AND_COMPANY-US201202000900

PATIENT
  Sex: Female

DRUGS (3)
  1. LANTUS [Concomitant]
     Dosage: UNK
  2. HUMALOG [Suspect]
     Indication: DIABETES MELLITUS
     Dosage: 6 U, TID
     Dates: start: 20110701
  3. HUMALOG [Suspect]
     Dosage: 6 U, TID
     Dates: start: 20110701

REACTIONS (5)
  - STRESS [None]
  - HAEMORRHOIDAL HAEMORRHAGE [None]
  - BLOOD GLUCOSE INCREASED [None]
  - MELANOCYTIC NAEVUS [None]
  - BASAL CELL CARCINOMA [None]
